FAERS Safety Report 5726757-5 (Version None)
Quarter: 2008Q2

REPORT INFORMATION
  Report Type: 
  Country: None (occurrence: None)
  Receive Date: 20080502
  Receipt Date: 20080421
  Transmission Date: 20081010
  Serious: Yes (Other)
  Sender: FDA-Public Use
  Company Number: US-PFIZER INC-2008000246

PATIENT
  Sex: Female
  Weight: 77.1 kg

DRUGS (11)
  1. CHANTIX [Suspect]
     Indication: SMOKING CESSATION THERAPY
     Dates: start: 20070101, end: 20071227
  2. XANAX [Suspect]
     Indication: DEPRESSION
  3. PREMARIN [Concomitant]
  4. METOPROLOL TARTRATE [Concomitant]
  5. NITROGLYCERIN [Concomitant]
     Route: 060
  6. NITROGLYCERIN [Concomitant]
     Route: 062
  7. CYCLOBENZAPRINE HCL [Concomitant]
  8. ACETYLSALICYLIC ACID SRT [Concomitant]
  9. VITAMIN E [Concomitant]
  10. MAGNESIUM [Concomitant]
  11. TYLENOL [Concomitant]

REACTIONS (8)
  - ABNORMAL DREAMS [None]
  - ANGINA PECTORIS [None]
  - DEPRESSION [None]
  - EMOTIONAL DISORDER [None]
  - MEDICATION ERROR [None]
  - NAUSEA [None]
  - PERSONALITY CHANGE [None]
  - SUICIDAL IDEATION [None]
